FAERS Safety Report 25716480 (Version 1)
Quarter: 2025Q3

REPORT INFORMATION
  Report Type: Spontaneous
  Country: US (occurrence: US)
  Receive Date: 20250822
  Receipt Date: 20250822
  Transmission Date: 20251021
  Serious: Yes (Other)
  Sender: INCYTE
  Company Number: US-002147023-NVSC2025US130534

PATIENT

DRUGS (1)
  1. JAKAFI [Suspect]
     Active Substance: RUXOLITINIB
     Indication: Complications of transplanted lung
     Route: 065

REACTIONS (2)
  - Cytomegalovirus viraemia [Unknown]
  - Off label use [Unknown]
